FAERS Safety Report 13795903 (Version 1)
Quarter: 2017Q3

REPORT INFORMATION
  Report Type: Spontaneous
  Country: US (occurrence: US)
  Receive Date: 20170726
  Receipt Date: 20170726
  Transmission Date: 20171127
  Serious: No
  Sender: FDA-Public Use
  Company Number: US-MYLANLABS-2016M1023239

PATIENT
  Sex: Female

DRUGS (3)
  1. VENLAFAXINE TABLETS, USP [Suspect]
     Active Substance: VENLAFAXINE HYDROCHLORIDE
     Indication: OFF LABEL USE
  2. ARIMIDEX [Concomitant]
     Active Substance: ANASTROZOLE
     Dosage: UNK
  3. VENLAFAXINE TABLETS, USP [Suspect]
     Active Substance: VENLAFAXINE HYDROCHLORIDE
     Indication: ARTHRALGIA
     Dosage: 37.5 MG, BID
     Route: 048
     Dates: start: 20160522

REACTIONS (2)
  - Yawning [Not Recovered/Not Resolved]
  - Nausea [Not Recovered/Not Resolved]

NARRATIVE: CASE EVENT DATE: 201605
